FAERS Safety Report 22629276 (Version 1)
Quarter: 2023Q2

REPORT INFORMATION
  Report Type: Spontaneous
  Country: CZ (occurrence: CZ)
  Receive Date: 20230622
  Receipt Date: 20230622
  Transmission Date: 20230722
  Serious: Yes (Other)
  Sender: FDA-Public Use
  Company Number: CZ-TEVA-2023-CZ-2898798

PATIENT
  Age: 62 Year
  Sex: Female

DRUGS (4)
  1. PACLITAXEL [Suspect]
     Active Substance: PACLITAXEL
     Indication: Endometrial cancer
     Dosage: 3 CYCLES IN COMBINATION WITH CARBOPLATIN
     Route: 042
     Dates: start: 20210108, end: 20210219
  2. CARBOPLATIN [Suspect]
     Active Substance: CARBOPLATIN
     Indication: Endometrial cancer
     Dosage: 3 CYCLES IN COMBINATION WITH PACLITAXEL
     Route: 065
     Dates: start: 20210108, end: 20210219
  3. TIANEPTINE SODIUM [Concomitant]
     Active Substance: TIANEPTINE SODIUM
     Indication: Product used for unknown indication
     Dosage: 12.5 MG
     Route: 065
  4. PLAQUENIL [Concomitant]
     Active Substance: HYDROXYCHLOROQUINE SULFATE
     Indication: Product used for unknown indication
     Dosage: 200MG TBL 0-0-1
     Route: 065

REACTIONS (2)
  - Pulmonary embolism [Recovered/Resolved]
  - Peripheral vein occlusion [Recovered/Resolved]

NARRATIVE: CASE EVENT DATE: 20210101
